FAERS Safety Report 7583396-1 (Version None)
Quarter: 2011Q2

REPORT INFORMATION
  Report Type: 
  Country: None (occurrence: None)
  Receive Date: 20110630
  Receipt Date: 20110621
  Transmission Date: 20111010
  Serious: Yes (Hospitalization, Other)
  Sender: FDA-Public Use
  Company Number: US-BAYER-201027352NA

PATIENT
  Age: 24 Year
  Sex: Female
  Weight: 99.773 kg

DRUGS (9)
  1. PROVERA [Concomitant]
  2. YASMIN [Suspect]
     Indication: MENSTRUAL CYCLE MANAGEMENT
     Dosage: UNK UNK, UNK
     Route: 048
     Dates: start: 20080101, end: 20080901
  3. IBUPROFEN [Concomitant]
  4. DROSPIRENONE AND ETHINYL ESTRADIOL [Suspect]
     Indication: MENSTRUAL CYCLE MANAGEMENT
     Dosage: UNK UNK, UNK
     Route: 048
     Dates: start: 20080101, end: 20080901
  5. APRI-GENERIC [Concomitant]
  6. METFORMIN HCL [Concomitant]
     Indication: POLYCYSTIC OVARIES
  7. YAZ [Suspect]
     Indication: MENSTRUAL CYCLE MANAGEMENT
     Dosage: UNK UNK, UNK
     Route: 048
     Dates: start: 20080101, end: 20080901
  8. METFORMIN HCL [Concomitant]
     Indication: INSULIN RESISTANCE
  9. BUPROPION HCL [Concomitant]

REACTIONS (4)
  - INSOMNIA [None]
  - GALLBLADDER INJURY [None]
  - GALLBLADDER DISORDER [None]
  - CHOLELITHIASIS [None]
